FAERS Safety Report 9819516 (Version 1)
Quarter: 2014Q1

REPORT INFORMATION
  Report Type: Spontaneous
  Country: FR (occurrence: None)
  Receive Date: 20140113
  Receipt Date: 20140113
  Transmission Date: 20141002
  Serious: Yes (Hospitalization)
  Sender: FDA-Public Use
  Company Number: IND1-FR-2013-0057

PATIENT
  Age: 72 Year
  Sex: Male

DRUGS (2)
  1. CHRONO-INDOCID [Suspect]
     Indication: PRODUCT USED FOR UNKNOWN INDICATION
     Route: 048
     Dates: start: 201112, end: 20130312
  2. ARAVA [Suspect]
     Indication: PRODUCT USED FOR UNKNOWN INDICATION
     Route: 048
     Dates: start: 201112, end: 20130312

REACTIONS (1)
  - Congestive cardiomyopathy [None]
